FAERS Safety Report 20571556 (Version 1)
Quarter: 2022Q1

REPORT INFORMATION
  Report Type: Report from Study
  Country: CA (occurrence: CA)
  Receive Date: 20220309
  Receipt Date: 20220309
  Transmission Date: 20220423
  Serious: Yes (Other)
  Sender: FDA-Public Use
  Company Number: None

PATIENT
  Sex: Male

DRUGS (7)
  1. MYCOPHENOLATE MOFETIL [Suspect]
     Active Substance: MYCOPHENOLATE MOFETIL
     Indication: Product used for unknown indication
     Dosage: 2 EVERY 1 DAYS
     Route: 048
  2. RITUXIMAB [Suspect]
     Active Substance: RITUXIMAB
     Indication: Ocular myasthenia
     Route: 041
  3. GLICLAZIDE [Concomitant]
     Active Substance: GLICLAZIDE
     Indication: Diabetes mellitus
  4. GLICLAZIDE [Concomitant]
     Active Substance: GLICLAZIDE
     Route: 048
  5. METFORMIN [Concomitant]
     Active Substance: METFORMIN HYDROCHLORIDE
     Indication: Diabetes mellitus
  6. PREDNISONE [Concomitant]
     Active Substance: PREDNISONE
  7. TACROLIMUS [Concomitant]
     Active Substance: TACROLIMUS

REACTIONS (9)
  - Blood triglycerides increased [Unknown]
  - Atrioventricular block first degree [Unknown]
  - Blood glucose increased [Unknown]
  - Eye disorder [Unknown]
  - Eyelid ptosis [Unknown]
  - Glycosylated haemoglobin increased [Unknown]
  - Haemoglobin increased [Unknown]
  - Infection [Unknown]
  - Vision blurred [Unknown]
